FAERS Safety Report 6984544-4 (Version None)
Quarter: 2010Q3

REPORT INFORMATION
  Report Type: 
  Country: None (occurrence: None)
  Receive Date: 20100915
  Receipt Date: 20100902
  Transmission Date: 20110219
  Serious: Yes (Other)
  Sender: FDA-Public Use
  Company Number: FR-PFIZER INC-2010111402

PATIENT
  Age: 50 Year
  Sex: Female

DRUGS (1)
  1. CHAMPIX [Suspect]

REACTIONS (2)
  - RASH MACULO-PAPULAR [None]
  - VOMITING [None]
